FAERS Safety Report 14725909 (Version 1)
Quarter: 2018Q2

REPORT INFORMATION
  Report Type: Spontaneous
  Country: IT (occurrence: IT)
  Receive Date: 20180406
  Receipt Date: 20180406
  Transmission Date: 20180711
  Serious: Yes (Other)
  Sender: FDA-Public Use
  Company Number: IT-CIPLA LTD.-2018IT13890

PATIENT

DRUGS (5)
  1. RISPERIDONE. [Suspect]
     Active Substance: RISPERIDONE
     Indication: INTENTIONAL SELF-INJURY
     Dosage: 60 ML, UNK
     Route: 048
     Dates: start: 20170610, end: 20170610
  2. TOLEP [Concomitant]
     Active Substance: OXCARBAZEPINE
     Indication: PRODUCT USED FOR UNKNOWN INDICATION
     Dosage: 300 MG, UNK
     Route: 065
  3. SYNFLEX                            /00167701/ [Suspect]
     Active Substance: MEPHENOXALONE
     Indication: INTENTIONAL SELF-INJURY
     Dosage: 4 DF, IN TOTAL
     Route: 048
     Dates: start: 20170610, end: 20170610
  4. MODALINA [Concomitant]
     Active Substance: TRIFLUOPERAZINE HYDROCHLORIDE
     Indication: PRODUCT USED FOR UNKNOWN INDICATION
     Dosage: 3 MG, UNK
     Route: 065
  5. QUETIAPINE. [Concomitant]
     Active Substance: QUETIAPINE
     Indication: PRODUCT USED FOR UNKNOWN INDICATION
     Dosage: 150 MG, UNK
     Route: 065

REACTIONS (2)
  - Tachycardia [Recovered/Resolved]
  - Drug use disorder [Recovered/Resolved]

NARRATIVE: CASE EVENT DATE: 20170610
